FAERS Safety Report 24642046 (Version 1)
Quarter: 2024Q4

REPORT INFORMATION
  Report Type: Spontaneous
  Country: US (occurrence: US)
  Receive Date: 20241120
  Receipt Date: 20241120
  Transmission Date: 20250114
  Serious: Yes (Hospitalization, Other)
  Sender: BRISTOL-MYERS SQUIBB COMPANY
  Company Number: US-BRISTOL-MYERS SQUIBB COMPANY-2024-177534

PATIENT
  Age: 77 Year
  Sex: Male

DRUGS (1)
  1. LENALIDOMIDE [Suspect]
     Active Substance: LENALIDOMIDE
     Indication: Plasma cell myeloma
     Dosage: TAKE 1 CAPSULE BY MOUTH EVERY DAY ON DAYS 1-21 IN A 28-DAY CYCLE
     Route: 048

REACTIONS (7)
  - Scab [Recovering/Resolving]
  - Ear swelling [Unknown]
  - Lid sulcus deepened [Unknown]
  - Otorrhoea [Unknown]
  - Blood sodium decreased [Unknown]
  - Hip fracture [Unknown]
  - Seizure [Unknown]
